FAERS Safety Report 8268208 (Version 5)
Quarter: 2014Q1

REPORT INFORMATION
  Report Type: Spontaneous
  Country: US (occurrence: US)
  Receive Date: 20111130
  Receipt Date: 20140117
  Transmission Date: 20141002
  Serious: No
  Sender: FDA-Public Use
  Company Number: US-PFIZER INC-2011290212

PATIENT
  Age: 78 Year
  Sex: Female
  Weight: 63.49 kg

DRUGS (7)
  1. PROTONIX [Suspect]
     Indication: GASTRITIS
     Dosage: 40 MG, DAILY
     Route: 048
  2. PROTONIX [Suspect]
     Indication: GASTROOESOPHAGEAL REFLUX DISEASE
     Dosage: UNK
  3. PROTONIX [Suspect]
     Indication: GASTRIC DISORDER
  4. SOTALOL [Concomitant]
     Dosage: UNK
  5. CUMADIN [Concomitant]
     Dosage: UNK
  6. ATIVAN [Concomitant]
     Dosage: UNK
  7. ASTEPRO [Suspect]
     Dosage: UNK

REACTIONS (3)
  - Drug ineffective [Unknown]
  - Epigastric discomfort [Not Recovered/Not Resolved]
  - Infection [Not Recovered/Not Resolved]
